FAERS Safety Report 6615649-5 (Version None)
Quarter: 2010Q1

REPORT INFORMATION
  Report Type: 
  Country: None (occurrence: None)
  Receive Date: 20100305
  Receipt Date: 20100226
  Transmission Date: 20100710
  Serious: Yes (Hospitalization)
  Sender: FDA-Public Use
  Company Number: US-SANOFI-AVENTIS-2010SA011533

PATIENT
  Age: 97 Year
  Sex: Female

DRUGS (3)
  1. MULTAQ [Suspect]
     Route: 065
  2. DIGOXIN [Concomitant]
     Route: 065
  3. BETA BLOCKING AGENTS [Concomitant]

REACTIONS (3)
  - DYSPNOEA [None]
  - PRESYNCOPE [None]
  - TORSADE DE POINTES [None]
